FAERS Safety Report 4679852-6 (Version None)
Quarter: 2005Q2

REPORT INFORMATION
  Report Type: 
  Country: None (occurrence: None)
  Receive Date: 20050602
  Receipt Date: 20050309
  Transmission Date: 20051028
  Serious: No
  Sender: FDA-Public Use
  Company Number: US-GLAXOSMITHKLINE-A0549015A

PATIENT
  Age: 47 Year
  Sex: Male
  Weight: 81.8 kg

DRUGS (4)
  1. AUGMENTIN [Suspect]
     Indication: SINUSITIS
     Dosage: 1000MG PER DAY
     Route: 048
     Dates: start: 20050308, end: 20050308
  2. COREG [Concomitant]
  3. GLUCOTROL XL [Concomitant]
  4. PROTONIX [Concomitant]

REACTIONS (2)
  - NAUSEA [None]
  - VOMITING [None]
